FAERS Safety Report 13473112 (Version 1)
Quarter: 2017Q2

REPORT INFORMATION
  Report Type: Spontaneous
  Country: JP (occurrence: JP)
  Receive Date: 20170424
  Receipt Date: 20170424
  Transmission Date: 20170830
  Serious: Yes (Other)
  Sender: FDA-Public Use
  Company Number: JP-BAYER-2017-072391

PATIENT
  Age: 77 Year
  Sex: Male

DRUGS (1)
  1. NEXAVAR [Suspect]
     Active Substance: SORAFENIB
     Indication: HEPATOCELLULAR CARCINOMA
     Dosage: DAILY DOSE 400 MG
     Route: 048
     Dates: start: 201506, end: 2015

REACTIONS (5)
  - Pyrexia [None]
  - Pleural effusion [None]
  - Tumour necrosis [None]
  - Microangiopathy [None]
  - Hepatic function abnormal [None]

NARRATIVE: CASE EVENT DATE: 2015
